FAERS Safety Report 24356445 (Version 2)
Quarter: 2024Q4

REPORT INFORMATION
  Report Type: Report from Study
  Country: US (occurrence: US)
  Receive Date: 20240924
  Receipt Date: 20241002
  Transmission Date: 20250115
  Serious: No
  Sender: AMGEN
  Company Number: US-AMGEN-USASP2024187408

PATIENT
  Sex: Female

DRUGS (2)
  1. EVENITY [Suspect]
     Active Substance: ROMOSOZUMAB-AQQG
     Indication: Osteoporosis
     Dosage: UNK UNK, QMO (TWO INJECTIONS ONCE A MONTH)
     Route: 065
     Dates: start: 202406
  2. KLONOPIN [Concomitant]
     Active Substance: CLONAZEPAM
     Indication: Sleep disorder
     Dosage: UNK
     Route: 065

REACTIONS (6)
  - Road traffic accident [Unknown]
  - Joint injury [Unknown]
  - Limb injury [Unknown]
  - Implant site swelling [Unknown]
  - Bursitis [Unknown]
  - Implant site discharge [Unknown]

NARRATIVE: CASE EVENT DATE: 20240806
